FAERS Safety Report 15490597 (Version 2)
Quarter: 2019Q1

REPORT INFORMATION
  Report Type: Spontaneous
  Country: US (occurrence: US)
  Receive Date: 20181011
  Receipt Date: 20190103
  Transmission Date: 20190417
  Serious: No
  Sender: FDA-Public Use
  Company Number: US-ACTELION-A-US2018-179933

PATIENT
  Age: 71 Year
  Sex: Female

DRUGS (14)
  1. NOVOLIN NPH [Concomitant]
     Active Substance: INSULIN HUMAN
  2. FLUOXETINE HYDROCHLORIDE. [Concomitant]
     Active Substance: FLUOXETINE HYDROCHLORIDE
  3. OPSUMIT [Suspect]
     Active Substance: MACITENTAN
     Indication: PULMONARY ARTERIAL HYPERTENSION
     Dosage: 10 MG, QD
     Route: 048
  4. ASPIRIN. [Concomitant]
     Active Substance: ASPIRIN
  5. LATANOPROST. [Concomitant]
     Active Substance: LATANOPROST
  6. POTASSIUM CHLORIDE. [Concomitant]
     Active Substance: POTASSIUM CHLORIDE
  7. ALPRAZOLAM. [Concomitant]
     Active Substance: ALPRAZOLAM
  8. METOPROLOL TARTRATE. [Concomitant]
     Active Substance: METOPROLOL TARTRATE
  9. NOVOLOG [Concomitant]
     Active Substance: INSULIN ASPART
  10. PRALUENT [Concomitant]
     Active Substance: ALIROCUMAB
  11. METFORMIN HCL [Concomitant]
     Active Substance: METFORMIN HYDROCHLORIDE
  12. RANEXA [Concomitant]
     Active Substance: RANOLAZINE
  13. SILDENAFIL. [Concomitant]
     Active Substance: SILDENAFIL
  14. LOSARTAN POTASSIUM. [Concomitant]
     Active Substance: LOSARTAN POTASSIUM

REACTIONS (4)
  - Bladder disorder [Unknown]
  - Dysuria [Recovered/Resolved]
  - Diarrhoea [Recovered/Resolved]
  - Urinary tract infection [Unknown]
